FAERS Safety Report 4276526-0 (Version None)
Quarter: 2004Q1

REPORT INFORMATION
  Report Type: 
  Country: None (occurrence: None)
  Receive Date: 20040120
  Receipt Date: 20040105
  Transmission Date: 20041129
  Serious: Yes (Other)
  Sender: FDA-Public Use
  Company Number: HQWYE186407JAN04

PATIENT
  Sex: Female

DRUGS (3)
  1. LO/OVRAL [Suspect]
     Indication: CONTRACEPTION
     Dosage: 1 TABLET DAILY, ORAL
     Route: 048
     Dates: start: 19900101, end: 19970101
  2. OVCON-50 [Suspect]
     Indication: CONTRACEPTION
     Dosage: 1 TABLET DAILY, ORAL
     Route: 048
     Dates: start: 19900101, end: 19970101
  3. PROMETRIUM [Suspect]

REACTIONS (3)
  - DIPLOPIA [None]
  - MENINGIOMA [None]
  - NEOPLASM GROWTH ACCELERATED [None]
